FAERS Safety Report 21935307 (Version 1)
Quarter: 2023Q1

REPORT INFORMATION
  Report Type: Spontaneous
  Country: DE (occurrence: DE)
  Receive Date: 20230201
  Receipt Date: 20230201
  Transmission Date: 20230418
  Serious: Yes (Other)
  Sender: FDA-Public Use
  Company Number: DE-GLAXOSMITHKLINE-DE2022EME193291

PATIENT

DRUGS (7)
  1. NUCALA [Suspect]
     Active Substance: MEPOLIZUMAB
     Indication: Nasal polyps
     Dosage: 100 MG
     Dates: start: 20220901
  2. NUCALA [Suspect]
     Active Substance: MEPOLIZUMAB
     Indication: NSAID exacerbated respiratory disease
     Dosage: 100 MG
     Dates: start: 20221210
  3. ASPIRIN [Concomitant]
     Active Substance: ASPIRIN
     Indication: Nasal polyps
     Dosage: UNK, QD (300)
  4. ASPIRIN [Concomitant]
     Active Substance: ASPIRIN
     Indication: NSAID exacerbated respiratory disease
  5. RAMIPRIL [Concomitant]
     Active Substance: RAMIPRIL
     Indication: Hypertension
     Dosage: 2.5 MG, BID
     Dates: start: 2002
  6. LERCANIDIPINE [Concomitant]
     Active Substance: LERCANIDIPINE
     Indication: Hypertension
     Dosage: 10 MG, QD
     Dates: start: 2004
  7. SIMVASTATIN [Concomitant]
     Active Substance: SIMVASTATIN
     Indication: Hypercholesterolaemia
     Dosage: 20 MG, QD
     Dates: start: 2010

REACTIONS (11)
  - Pain in extremity [Recovering/Resolving]
  - Gait inability [Recovering/Resolving]
  - Discomfort [Recovering/Resolving]
  - Condition aggravated [Recovering/Resolving]
  - Musculoskeletal discomfort [Recovering/Resolving]
  - Arthralgia [Recovering/Resolving]
  - Back pain [Recovering/Resolving]
  - Pain [Recovering/Resolving]
  - Sleep disorder [Unknown]
  - Coronavirus infection [Recovering/Resolving]
  - Off label use [Unknown]

NARRATIVE: CASE EVENT DATE: 20220101
